FAERS Safety Report 19947956 (Version 2)
Quarter: 2021Q4

REPORT INFORMATION
  Report Type: Spontaneous
  Country: US (occurrence: US)
  Receive Date: 20211012
  Receipt Date: 20211101
  Transmission Date: 20220303
  Serious: Yes (Hospitalization, Other)
  Sender: FDA-Public Use
  Company Number: US-DSPHARMA-2021SUN003889

PATIENT
  Sex: Female

DRUGS (11)
  1. LATUDA [Suspect]
     Active Substance: LURASIDONE HYDROCHLORIDE
     Indication: Bipolar disorder
     Dosage: 60 MG
     Route: 048
     Dates: start: 20210914
  2. LATUDA [Suspect]
     Active Substance: LURASIDONE HYDROCHLORIDE
     Dosage: 160 MG (2 TABLETS OF 80 MG)
     Route: 048
     Dates: start: 20210926
  3. LATUDA [Suspect]
     Active Substance: LURASIDONE HYDROCHLORIDE
     Dosage: 60 MG, QD
     Route: 048
  4. ABILIFY [Concomitant]
     Active Substance: ARIPIPRAZOLE
  5. FERROUS SULFATE [Concomitant]
     Active Substance: FERROUS SULFATE
  6. CALCIUM [Concomitant]
     Active Substance: CALCIUM
  7. METOPROLOL [Concomitant]
     Active Substance: METOPROLOL
     Indication: Blood pressure abnormal
     Dosage: 25 MG
     Route: 048
  8. SPIRONOLACTONE [Concomitant]
     Active Substance: SPIRONOLACTONE
     Indication: Blood pressure abnormal
  9. ALLOPURINOL [Concomitant]
     Active Substance: ALLOPURINOL
     Indication: Gout
     Dosage: 100 MG
     Route: 048
  10. METFORMIN [Concomitant]
     Active Substance: METFORMIN HYDROCHLORIDE
     Indication: Glucose tolerance impaired
     Dosage: 1000 MG
     Route: 048
  11. TYLENOL [Concomitant]
     Active Substance: ACETAMINOPHEN
     Indication: Pain

REACTIONS (18)
  - Neuropathy peripheral [Not Recovered/Not Resolved]
  - Rectal haemorrhage [Recovered/Resolved]
  - Loss of consciousness [Not Recovered/Not Resolved]
  - Mania [Not Recovered/Not Resolved]
  - Lower limb fracture [Recovered/Resolved]
  - Upper limb fracture [Recovering/Resolving]
  - Joint injury [Recovering/Resolving]
  - Eye swelling [Unknown]
  - Sensory loss [Not Recovered/Not Resolved]
  - Contusion [Not Recovered/Not Resolved]
  - Flatulence [Unknown]
  - Vision blurred [Unknown]
  - Somnolence [Unknown]
  - Insomnia [Unknown]
  - Hypersomnia [Not Recovered/Not Resolved]
  - Abdominal pain upper [Not Recovered/Not Resolved]
  - Inappropriate schedule of product administration [Unknown]
  - Prescribed overdose [Unknown]

NARRATIVE: CASE EVENT DATE: 20210914
